FAERS Safety Report 8919457 (Version 1)
Quarter: 2012Q4

REPORT INFORMATION
  Report Type: 
  Country: US (occurrence: US)
  Receive Date: 20121121
  Receipt Date: 20121121
  Transmission Date: 20130627
  Serious: Yes (Hospitalization)
  Sender: FDA-Public Use
  Company Number: US-SANOFI-AVENTIS-2012SA082503

PATIENT
  Sex: Male

DRUGS (2)
  1. LANTUS SOLOSTAR [Suspect]
     Dosage: Dose:14 unit(s)
     Route: 058
     Dates: start: 2012
  2. SOLOSTAR [Suspect]
     Dates: start: 2012

REACTIONS (1)
  - Cystitis [Recovering/Resolving]
